FAERS Safety Report 4636451-X (Version None)
Quarter: 2005Q2

REPORT INFORMATION
  Report Type: 
  Country: None (occurrence: None)
  Receive Date: 20050413
  Receipt Date: 20050413
  Transmission Date: 20051028
  Serious: No
  Sender: FDA-Public Use
  Company Number: None

PATIENT
  Sex: Male
  Weight: 34.0198 kg

DRUGS (3)
  1. ETOPOSIDE [Suspect]
     Dosage: 100 MG/M2 IV OVER 30-60 MIN ON DAYS 1, 2 AND 3 Q 3 WKS
     Route: 042
     Dates: start: 20050315
  2. CISPLATIN [Suspect]
     Dosage: 80 MG/M2 IV OVER 30-60 MIN ON DAY 1 Q 3WK
     Route: 042
  3. PREDNISONE [Concomitant]

REACTIONS (11)
  - ABSCESS [None]
  - ARTHRITIS BACTERIAL [None]
  - BACTERIAL INFECTION [None]
  - CELLULITIS [None]
  - CHRONIC OBSTRUCTIVE PULMONARY DISEASE [None]
  - EMBOLISM [None]
  - EPISTAXIS [None]
  - INTERSTITIAL LUNG DISEASE [None]
  - PANCYTOPENIA [None]
  - SEPSIS [None]
  - SKIN NECROSIS [None]
